FAERS Safety Report 24395465 (Version 3)
Quarter: 2024Q4

REPORT INFORMATION
  Report Type: Spontaneous
  Country: IN (occurrence: IN)
  Receive Date: 20241004
  Receipt Date: 20241014
  Transmission Date: 20250115
  Serious: Yes (Death, Life-Threatening, Hospitalization, Other)
  Sender: JUBILANT
  Company Number: None

PATIENT
  Age: 30 Year
  Sex: Male

DRUGS (2)
  1. ITRACONAZOLE [Suspect]
     Active Substance: ITRACONAZOLE
     Indication: Body tinea
     Dosage: TAKING THE MEDICATION FOR A WEEK
  2. TERBINAFINE [Suspect]
     Active Substance: TERBINAFINE\TERBINAFINE HYDROCHLORIDE
     Indication: Body tinea
     Dosage: TAKING THE MEDICATION FOR A WEEK

REACTIONS (12)
  - Cutaneous vasculitis [Fatal]
  - Multiple organ dysfunction syndrome [Fatal]
  - Pulmonary alveolar haemorrhage [Fatal]
  - Respiratory failure [Fatal]
  - Haemophagocytic lymphohistiocytosis [Fatal]
  - Disseminated intravascular coagulation [Fatal]
  - Hyperkalaemia [Fatal]
  - Liver injury [Fatal]
  - Nephropathy [Fatal]
  - Cardiac arrest [Fatal]
  - Respiratory failure [Fatal]
  - Myocarditis [Fatal]
